FAERS Safety Report 21334200 (Version 1)
Quarter: 2022Q3

REPORT INFORMATION
  Report Type: Spontaneous
  Country: US (occurrence: None)
  Receive Date: 20220914
  Receipt Date: 20220914
  Transmission Date: 20221027
  Serious: Yes (Other)
  Sender: FDA-Public Use
  Company Number: None

PATIENT
  Age: 58 Year
  Sex: Male
  Weight: 88 kg

DRUGS (1)
  1. CARBOPLATIN [Suspect]
     Active Substance: CARBOPLATIN
     Indication: Anal neoplasm
     Dosage: OTHER FREQUENCY : EVERY 2 WEEKS;?
     Route: 042
     Dates: start: 20220323

REACTIONS (5)
  - Hyperhidrosis [None]
  - Mental status changes [None]
  - Somnolence [None]
  - Sensation of foreign body [None]
  - Infusion related reaction [None]

NARRATIVE: CASE EVENT DATE: 20220907
